FAERS Safety Report 26210066 (Version 1)
Quarter: 2025Q4

REPORT INFORMATION
  Report Type: Spontaneous
  Country: EU (occurrence: EU)
  Receive Date: 20251229
  Receipt Date: 20251229
  Transmission Date: 20260118
  Serious: Yes (Other)
  Sender: TEVA
  Company Number: None

PATIENT
  Age: 79 Year
  Sex: Female
  Weight: 50 kg

DRUGS (1)
  1. PRAVASTATIN SODIUM [Suspect]
     Active Substance: PRAVASTATIN SODIUM
     Indication: Hypercholesterolaemia
     Route: 048
     Dates: start: 20250820, end: 20250924

REACTIONS (3)
  - Loss of consciousness [Recovered/Resolved]
  - Paraesthesia [Recovered/Resolved]
  - Visual impairment [Recovered/Resolved]

NARRATIVE: CASE EVENT DATE: 20250821
